FAERS Safety Report 12099224 (Version 5)
Quarter: 2019Q3

REPORT INFORMATION
  Report Type: Spontaneous
  Country: US (occurrence: US)
  Receive Date: 20160222
  Receipt Date: 20190913
  Transmission Date: 20191004
  Serious: Yes (Other)
  Sender: FDA-Public Use
  Company Number: US-PFIZER INC-2016103919

PATIENT
  Age: 62 Year
  Sex: Female

DRUGS (3)
  1. LETROZOLE. [Concomitant]
     Active Substance: LETROZOLE
     Dosage: UNK
  2. MENEST [ESTROGENS ESTERIFIED] [Concomitant]
     Dosage: UNK
  3. PREMARIN [Suspect]
     Active Substance: ESTROGENS, CONJUGATED
     Indication: MENOPAUSE
     Dosage: UNK

REACTIONS (4)
  - Breast cancer [Unknown]
  - Headache [Not Recovered/Not Resolved]
  - Malaise [Unknown]
  - Multiple fractures [Unknown]

NARRATIVE: CASE EVENT DATE: 201403
